FAERS Safety Report 8834701 (Version 2)
Quarter: 2013Q1

REPORT INFORMATION
  Report Type: Report from Study
  Country: CA (occurrence: CA)
  Receive Date: 20121010
  Receipt Date: 20130104
  Transmission Date: 20140127
  Serious: Yes (Death, Hospitalization)
  Sender: FDA-Public Use
  Company Number: CA-BRISTOL-MYERS SQUIBB COMPANY-16928426

PATIENT
  Age: 67 Year
  Sex: Male
  Weight: 72 kg

DRUGS (12)
  1. ERBITUX [Suspect]
     Indication: HEAD AND NECK CANCER METASTATIC
     Dosage: 100MG/M2:31JL12,FRM 7AG12:250MG/M2 D1,D8,D15?LSTDOSE:21AG12,INTRD:28AG12?31JL12-31JL12:400MG/M2/D
     Route: 042
     Dates: start: 20120731
  2. CISPLATIN [Suspect]
     Indication: HEAD AND NECK CANCER METASTATIC
     Dosage: LAST DOSE:21AUG12 AND INTERRUPTED ON 28AUG2012
     Route: 042
     Dates: start: 20120731
  3. 5-FLUOROURACIL [Suspect]
     Indication: HEAD AND NECK CANCER METASTATIC
     Dosage: DAYS 1-4,LAST DOSE:21AUG12?INTRPD:28AUG12
     Route: 042
     Dates: start: 20120731
  4. CRESTOR [Concomitant]
     Indication: DYSLIPIDAEMIA
     Dates: start: 1985
  5. ENTROPHEN [Concomitant]
     Indication: CARDIOVASCULAR EVENT PROPHYLAXIS
     Dates: start: 1992
  6. VALSARTAN [Concomitant]
     Indication: HYPERTENSION
     Dates: start: 20120724
  7. INSULINE [Concomitant]
     Indication: DIABETES MELLITUS
     Dates: start: 20120807
  8. METFORMIN [Concomitant]
     Indication: DIABETES MELLITUS
     Dates: start: 20120802
  9. LYRICA [Concomitant]
     Indication: PAIN
     Dates: start: 20120821
  10. METHADONE [Concomitant]
     Indication: PAIN
     Dates: start: 20120821
  11. MACROGOL [Concomitant]
     Indication: CONSTIPATION PROPHYLAXIS
     Dates: start: 20120821
  12. COLACE [Concomitant]
     Indication: CONSTIPATION PROPHYLAXIS
     Dates: start: 20120821, end: 20120823

REACTIONS (3)
  - Pneumonia [Fatal]
  - Oral infection [Fatal]
  - Dehydration [Recovered/Resolved]
